FAERS Safety Report 9228751 (Version 2)
Quarter: 2013Q3

REPORT INFORMATION
  Report Type: Spontaneous
  Country: US (occurrence: US)
  Receive Date: 20130412
  Receipt Date: 20130822
  Transmission Date: 20140515
  Serious: Yes (Hospitalization, Other)
  Sender: FDA-Public Use
  Company Number: US-B.I. PHARMACEUTICALS,INC./RIDGEFIELD-2013-BI-09268PF

PATIENT
  Sex: Female

DRUGS (16)
  1. SPIRIVA [Suspect]
     Indication: CHRONIC OBSTRUCTIVE PULMONARY DISEASE
  2. SPIRIVA [Suspect]
     Dosage: 18 MCG
     Route: 055
     Dates: start: 2004
  3. CLOPIDOGREL [Suspect]
  4. ENOXAPARIN [Suspect]
  5. OXYCODONE [Suspect]
  6. WARFARIN [Suspect]
  7. HYDROCODONE [Suspect]
  8. LEVOTHYROXINE [Suspect]
  9. ROBAXIN [Suspect]
  10. VITAMIN D [Suspect]
  11. ALBUTEROL NEBULIZER INHALATION SOLUTION [Suspect]
     Route: 055
  12. AZITHROMYCIN [Suspect]
  13. CETRIZINE [Suspect]
  14. CLONAZEPAM [Suspect]
  15. LACTULOSE [Suspect]
  16. NEBS [Concomitant]
     Indication: CHRONIC OBSTRUCTIVE PULMONARY DISEASE
     Route: 055

REACTIONS (10)
  - Peripheral embolism [Not Recovered/Not Resolved]
  - Myocardial infarction [Recovered/Resolved]
  - Malaise [Unknown]
  - Pain [Unknown]
  - Systemic lupus erythematosus [Not Recovered/Not Resolved]
  - Sleep apnoea syndrome [Not Recovered/Not Resolved]
  - Urinary tract infection [Recovered/Resolved]
  - Pneumonia [Not Recovered/Not Resolved]
  - Influenza [Recovered/Resolved]
  - Decreased appetite [Not Recovered/Not Resolved]
